FAERS Safety Report 24447120 (Version 3)
Quarter: 2024Q4

REPORT INFORMATION
  Report Type: Spontaneous
  Country: US (occurrence: US)
  Receive Date: 20241016
  Receipt Date: 20241204
  Transmission Date: 20250115
  Serious: No
  Sender: CALLIDITAS THERAPEUTICS AB
  Company Number: US-Calliditas-2024CAL02165

PATIENT
  Age: 51 Year
  Sex: Male

DRUGS (11)
  1. TARPEYO [Suspect]
     Active Substance: BUDESONIDE
     Indication: Nephritic syndrome
     Route: 048
     Dates: start: 20241002
  2. FARXIGA [Concomitant]
     Active Substance: DAPAGLIFLOZIN PROPANEDIOL
  3. OLMESARTAN [Concomitant]
     Active Substance: OLMESARTAN
  4. ATORVASTATIN [Concomitant]
     Active Substance: ATORVASTATIN
  5. NIFEDIPINE [Concomitant]
     Active Substance: NIFEDIPINE
  6. CHOLECALCIFEROL [Concomitant]
     Active Substance: CHOLECALCIFEROL
  7. CHLORTHALIDONE [Concomitant]
     Active Substance: CHLORTHALIDONE
  8. DRAMAMINE [Concomitant]
     Active Substance: DIMENHYDRINATE
  9. LOKELMA [Concomitant]
     Active Substance: SODIUM ZIRCONIUM CYCLOSILICATE
  10. SUCRALFATE [Concomitant]
     Active Substance: SUCRALFATE
  11. ALLOPURINOL [Concomitant]
     Active Substance: ALLOPURINOL

REACTIONS (3)
  - Abdominal pain upper [Recovering/Resolving]
  - Swelling [Unknown]
  - Acne [Unknown]

NARRATIVE: CASE EVENT DATE: 20241003
